FAERS Safety Report 9922661 (Version 2)
Quarter: 2014Q1

REPORT INFORMATION
  Report Type: Spontaneous
  Country: US (occurrence: US)
  Receive Date: 20140225
  Receipt Date: 20140312
  Transmission Date: 20141002
  Serious: Yes (Other)
  Sender: FDA-Public Use
  Company Number: US-ALLERGAN-1402849US

PATIENT
  Age: 65 Year
  Sex: Male
  Weight: 90.7 kg

DRUGS (3)
  1. ALPHAGAN [Suspect]
     Indication: OCULAR HYPERTENSION
     Dosage: UNK
     Dates: start: 201308
  2. DORZOLAMIDE EYE DROPS [Suspect]
     Indication: OCULAR HYPERTENSION
     Dosage: UNK
     Dates: start: 201308
  3. FLUOCINONIDE CREAM USP 0.05% [Suspect]
     Indication: PRODUCT USED FOR UNKNOWN INDICATION
     Route: 047

REACTIONS (2)
  - Intraocular pressure increased [Unknown]
  - Drug ineffective [Unknown]
